FAERS Safety Report 16611015 (Version 7)
Quarter: 2020Q3

REPORT INFORMATION
  Report Type: Report from Study
  Country: US (occurrence: US)
  Receive Date: 20190722
  Receipt Date: 20200820
  Transmission Date: 20201102
  Serious: Yes (Death, Hospitalization, Other)
  Sender: FDA-Public Use
  Company Number: US-ACTELION-A-NJ2019-190912

PATIENT
  Age: 77 Year
  Sex: Male
  Weight: 54.42 kg

DRUGS (3)
  1. VELETRI [Suspect]
     Active Substance: EPOPROSTENOL
     Indication: PULMONARY ARTERIAL HYPERTENSION
     Dosage: 20 NG/KG, PER MIN
     Route: 042
  2. VELETRI [Suspect]
     Active Substance: EPOPROSTENOL
     Dosage: 8 NG/KG, PER MIN
     Route: 042
  3. ELIQUIS [Concomitant]
     Active Substance: APIXABAN

REACTIONS (24)
  - Device infusion issue [Recovered/Resolved]
  - Oxygen therapy [Unknown]
  - Diarrhoea [Unknown]
  - Device occlusion [Recovered/Resolved]
  - Pain in jaw [Unknown]
  - Device alarm issue [Unknown]
  - Sinus disorder [Unknown]
  - Drug delivery system malfunction [Recovered/Resolved]
  - Condition aggravated [Unknown]
  - Sinusitis [Unknown]
  - Product dose omission issue [Unknown]
  - Lacrimation increased [Unknown]
  - Dyspnoea exertional [Unknown]
  - Dyspnoea [Unknown]
  - Heart rate increased [Unknown]
  - Hypoxia [Fatal]
  - Rhinorrhoea [Unknown]
  - Catheter management [Recovered/Resolved]
  - Palpitations [Unknown]
  - Oxygen saturation decreased [Unknown]
  - Eye irritation [Unknown]
  - Pleural effusion [Unknown]
  - Nasal congestion [Unknown]
  - Abdominal discomfort [Recovered/Resolved]

NARRATIVE: CASE EVENT DATE: 20190709
